FAERS Safety Report 18066689 (Version 1)
Quarter: 2020Q3

REPORT INFORMATION
  Report Type: Spontaneous
  Country: CN (occurrence: CN)
  Receive Date: 20200724
  Receipt Date: 20200724
  Transmission Date: 20201103
  Serious: Yes (Hospitalization, Other)
  Sender: FDA-Public Use
  Company Number: CN-ASTRAZENECA-2020SE91596

PATIENT
  Age: 17328 Day
  Sex: Female
  Weight: 50 kg

DRUGS (2)
  1. TAGRISSO [Suspect]
     Active Substance: OSIMERTINIB
     Indication: NEOPLASM MALIGNANT
     Route: 048
     Dates: start: 20200220, end: 20200708
  2. IRESSA [Suspect]
     Active Substance: GEFITINIB
     Indication: NON-SMALL CELL LUNG CANCER
     Route: 048

REACTIONS (6)
  - Hypokalaemia [Recovering/Resolving]
  - Platelet count decreased [Recovering/Resolving]
  - Leukopenia [Recovering/Resolving]
  - Acquired gene mutation [Unknown]
  - Cutaneous symptom [Unknown]
  - Drug resistance [Unknown]

NARRATIVE: CASE EVENT DATE: 20200330
